FAERS Safety Report 8862203 (Version 1)
Quarter: 2012Q4

REPORT INFORMATION
  Report Type: 
  Country: US (occurrence: US)
  Receive Date: 20121026
  Receipt Date: 20121026
  Transmission Date: 20130627
  Serious: Yes (Hospitalization)
  Sender: FDA-Public Use
  Company Number: US-ROCHE-GNE215535

PATIENT
  Age: 35 Year
  Sex: Female
  Weight: 70.08 kg

DRUGS (1)
  1. RAPTIVA [Suspect]
     Indication: PSORIASIS
     Dosage: 70 mg, 1/Week
     Route: 058
     Dates: start: 20050516

REACTIONS (7)
  - Pancytopenia [Recovered/Resolved]
  - Pyrexia [Unknown]
  - Lymphocytosis [Unknown]
  - Thrombocytopenia [Unknown]
  - Anaemia [Unknown]
  - Neutropenia [Unknown]
  - Skin exfoliation [Unknown]
